FAERS Safety Report 4699069-9 (Version None)
Quarter: 2005Q2

REPORT INFORMATION
  Report Type: 
  Country: None (occurrence: None)
  Receive Date: 20050622
  Receipt Date: 20050622
  Transmission Date: 20051028
  Serious: Yes (Hospitalization)
  Sender: FDA-Public Use
  Company Number: None

PATIENT
  Age: 63 Year
  Sex: Male
  Weight: 83.0083 kg

DRUGS (4)
  1. ACYCLOVIR [Suspect]
     Indication: OSTEOARTHRITIS
     Dosage: 800 MG Q 8 IV
     Route: 042
     Dates: start: 20050329, end: 20050403
  2. ROCEPHIN [Concomitant]
  3. BIAXIN [Concomitant]
  4. VANCOMYCIN [Concomitant]

REACTIONS (2)
  - INFUSION SITE REACTION [None]
  - SKIN LESION [None]
